FAERS Safety Report 14719546 (Version 1)
Quarter: 2018Q2

REPORT INFORMATION
  Report Type: Spontaneous
  Country: US (occurrence: US)
  Receive Date: 20180405
  Receipt Date: 20180405
  Transmission Date: 20180711
  Serious: No
  Sender: FDA-Public Use
  Company Number: US-PFIZER INC-2018137577

PATIENT
  Age: 79 Year
  Sex: Female
  Weight: 52.16 kg

DRUGS (1)
  1. CHANTIX [Suspect]
     Active Substance: VARENICLINE TARTRATE
     Indication: SMOKING CESSATION THERAPY
     Dosage: STARTER PACK, SHE WAS ON THE BLUE PILLS.
     Dates: start: 20180321, end: 20180402

REACTIONS (4)
  - Nausea [Not Recovered/Not Resolved]
  - Weight decreased [Unknown]
  - Feeding disorder [Unknown]
  - Retching [Unknown]

NARRATIVE: CASE EVENT DATE: 20180330
